FAERS Safety Report 8247229-2 (Version None)
Quarter: 2012Q1

REPORT INFORMATION
  Report Type: 
  Country: None (occurrence: None)
  Receive Date: 20120330
  Receipt Date: 20120328
  Transmission Date: 20120608
  Serious: No
  Sender: FDA-Public Use
  Company Number: US-TEVA-329448USA

PATIENT
  Sex: Female
  Weight: 104.42 kg

DRUGS (2)
  1. VITAMIN D [Concomitant]
     Indication: BLOOD IRON DECREASED
  2. PLAN B ONE-STEP [Suspect]
     Indication: POST COITAL CONTRACEPTION
     Dosage: 1.5 MILLIGRAM;
     Route: 048
     Dates: start: 20120319, end: 20120319

REACTIONS (3)
  - DIARRHOEA [None]
  - FATIGUE [None]
  - VAGINAL DISCHARGE [None]
